FAERS Safety Report 22678217 (Version 4)
Quarter: 2024Q1

REPORT INFORMATION
  Report Type: Spontaneous
  Country: US (occurrence: US)
  Receive Date: 20230706
  Receipt Date: 20240306
  Transmission Date: 20240410
  Serious: No
  Sender: FDA-Public Use
  Company Number: US-PFIZER INC-US-GBT-020371

PATIENT
  Age: 11 Year
  Sex: Female

DRUGS (7)
  1. OXBRYTA [Suspect]
     Active Substance: VOXELOTOR
     Indication: Sickle cell disease
     Dosage: 1500 MG, 1X/DAY
     Route: 048
     Dates: start: 20230123
  2. OXBRYTA [Suspect]
     Active Substance: VOXELOTOR
     Dosage: 1500 MG, 1X/DAY
     Route: 048
     Dates: start: 20230210
  3. OXBRYTA [Suspect]
     Active Substance: VOXELOTOR
     Dosage: 500 MG, 1X/DAY
     Route: 048
     Dates: start: 20230217, end: 20230220
  4. OXBRYTA [Suspect]
     Active Substance: VOXELOTOR
     Dosage: 3X500MG TABLETS BY MOUTH ONCE A DAY
     Route: 048
     Dates: start: 202311
  5. OXBRYTA [Suspect]
     Active Substance: VOXELOTOR
     Dosage: 1500 MG, 1X/DAY
     Route: 048
  6. OXBRYTA [Suspect]
     Active Substance: VOXELOTOR
     Dosage: 1X500MG TABLET BY MOUTH ONCE A DAY
     Route: 048
     Dates: start: 202311
  7. OXBRYTA [Suspect]
     Active Substance: VOXELOTOR
     Dosage: 1X500MG TABLET BY MOUTH ONCE A DAY
     Route: 048
     Dates: start: 202311

REACTIONS (5)
  - Off label use [Unknown]
  - Intentional dose omission [Unknown]
  - Migraine [Recovered/Resolved]
  - Headache [Recovered/Resolved]
  - Abdominal pain upper [Unknown]

NARRATIVE: CASE EVENT DATE: 20230201
